FAERS Safety Report 5484339-7 (Version None)
Quarter: 2007Q4

REPORT INFORMATION
  Report Type: 
  Country: None (occurrence: None)
  Receive Date: 20071010
  Receipt Date: 20070925
  Transmission Date: 20080405
  Serious: Yes (Other)
  Sender: FDA-Public Use
  Company Number: 2007S1008485

PATIENT
  Age: 66 Year
  Sex: Female
  Weight: 68.0396 kg

DRUGS (10)
  1. PHENYTOIN SODIUM [Suspect]
     Indication: CONVULSION
     Dosage: 300 MG; 3 TIMES A DAY; ORAL; 200 MG; AT BEDTIME; ORAL
     Route: 048
     Dates: start: 20050701, end: 20070801
  2. PHENYTOIN SODIUM [Suspect]
     Indication: CONVULSION
     Dosage: 300 MG; 3 TIMES A DAY; ORAL; 200 MG; AT BEDTIME; ORAL
     Route: 048
     Dates: start: 20070801
  3. LEVOTHROID (CON.) [Concomitant]
  4. ATENOLOL (CON.) [Concomitant]
  5. COUMADIN /00014802/ (CON.) [Concomitant]
  6. LOVASTATIN (CON.) [Concomitant]
  7. OXYBUTYNIN (CON.) [Concomitant]
  8. DIGOXIN (CON.) [Concomitant]
  9. GABAPENTIN (CON.) [Concomitant]
  10. TYLENOL /00020001/ (CON.) [Concomitant]

REACTIONS (4)
  - DRUG TOXICITY [None]
  - GRAND MAL CONVULSION [None]
  - TRANSIENT ISCHAEMIC ATTACK [None]
  - URINARY TRACT INFECTION [None]
